FAERS Safety Report 12638866 (Version 3)
Quarter: 2022Q1

REPORT INFORMATION
  Report Type: Spontaneous
  Country: US (occurrence: US)
  Receive Date: 20160809
  Receipt Date: 20220323
  Transmission Date: 20220423
  Serious: Yes (Hospitalization, Other)
  Sender: FDA-Public Use
  Company Number: US-MLMSERVICE-20160623-0333254-1

PATIENT
  Age: 63 Year
  Sex: Male

DRUGS (1)
  1. MORPHINE SULFATE [Suspect]
     Active Substance: MORPHINE SULFATE
     Indication: Product used for unknown indication

REACTIONS (4)
  - Overdose [Recovered/Resolved]
  - Acute kidney injury [Recovered/Resolved]
  - Pneumonia aspiration [Recovered/Resolved]
  - Leukoencephalopathy [Not Recovered/Not Resolved]
